FAERS Safety Report 8247614-9 (Version None)
Quarter: 2012Q1

REPORT INFORMATION
  Report Type: 
  Country: None (occurrence: None)
  Receive Date: 20120330
  Receipt Date: 20120316
  Transmission Date: 20120608
  Serious: Yes (Other)
  Sender: FDA-Public Use
  Company Number: AU-JNJFOC-20120307134

PATIENT
  Sex: Female

DRUGS (2)
  1. MICARDIS HCT [Concomitant]
     Indication: HYPERTENSION
     Dosage: 80/12.5 MG DAILY
  2. STELARA [Suspect]
     Indication: PSORIASIS
     Route: 058
     Dates: start: 20120310

REACTIONS (2)
  - POSTMENOPAUSAL HAEMORRHAGE [None]
  - CYSTITIS [None]
